FAERS Safety Report 20729405 (Version 1)
Quarter: 2022Q2

REPORT INFORMATION
  Report Type: Spontaneous
  Country: US (occurrence: None)
  Receive Date: 20220420
  Receipt Date: 20220420
  Transmission Date: 20220721
  Serious: Yes (Hospitalization)
  Sender: FDA-Public Use
  Company Number: US-Ultragenyx Pharmaceutical Inc.-US-UGNX-22-00215

PATIENT
  Sex: Male

DRUGS (2)
  1. DOJOLVI [Suspect]
     Active Substance: TRIHEPTANOIN
     Indication: Very long-chain acyl-coenzyme A dehydrogenase deficiency
     Dosage: 15 ML FOUR TIMES DAILY VIA G-TUBE
     Dates: start: 20220208
  2. DOJOLVI [Suspect]
     Active Substance: TRIHEPTANOIN
     Dates: start: 20220228

REACTIONS (1)
  - Gastrostomy [Unknown]
